FAERS Safety Report 7789069-4 (Version None)
Quarter: 2011Q3

REPORT INFORMATION
  Report Type: 
  Country: None (occurrence: None)
  Receive Date: 20110930
  Receipt Date: 20110920
  Transmission Date: 20111222
  Serious: Yes (Other)
  Sender: FDA-Public Use
  Company Number: GB-JNJFOC-20110910761

PATIENT

DRUGS (6)
  1. ETOPOSIDE [Suspect]
     Indication: LANGERHANS' CELL HISTIOCYTOSIS
     Dosage: AFTER 1 CYCLE OF SALVAGE THERAPY
     Route: 065
  2. CYTARABINE [Suspect]
     Indication: LANGERHANS' CELL HISTIOCYTOSIS
     Route: 065
  3. VINBLASTINE SULFATE [Suspect]
     Indication: LANGERHANS' CELL HISTIOCYTOSIS
     Route: 065
  4. CLADRIBINE [Suspect]
     Indication: LANGERHANS' CELL HISTIOCYTOSIS
     Route: 065
  5. PREDNISOLONE [Suspect]
     Indication: LANGERHANS' CELL HISTIOCYTOSIS
     Route: 065
  6. ETOPOSIDE [Suspect]
     Route: 065

REACTIONS (3)
  - SEPSIS [None]
  - PNEUMATOSIS INTESTINALIS [None]
  - PANCYTOPENIA [None]
